FAERS Safety Report 8756924 (Version 1)
Quarter: 2012Q4

REPORT INFORMATION
  Report Type: 
  Country: DZ (occurrence: DZ)
  Receive Date: 20120828
  Receipt Date: 20120828
  Transmission Date: 20130627
  Serious: Yes (Death, Other)
  Sender: FDA-Public Use
  Company Number: DZ-SANOFI-AVENTIS-2012SA061172

PATIENT
  Age: 44 Year
  Sex: Female

DRUGS (1)
  1. TAXOTERE [Suspect]
     Indication: BREAST CARCINOMA
     Route: 065
     Dates: start: 20111120

REACTIONS (6)
  - Dyspnoea [Fatal]
  - Productive cough [Fatal]
  - Respiratory distress [Fatal]
  - Sputum purulent [Unknown]
  - Pyrexia [Unknown]
  - Chest pain [Unknown]
